FAERS Safety Report 24618647 (Version 3)
Quarter: 2024Q4

REPORT INFORMATION
  Report Type: Spontaneous
  Country: CA (occurrence: CA)
  Receive Date: 20241114
  Receipt Date: 20241203
  Transmission Date: 20250115
  Serious: Yes (Hospitalization, Other)
  Sender: BAYER HEALTHCARE LLC
  Company Number: CA-BAYER-2024A162076

PATIENT
  Age: 17 Year
  Sex: Female

DRUGS (22)
  1. ALEVE [Suspect]
     Active Substance: NAPROXEN SODIUM
     Indication: Injection site pain
     Dosage: UNK
     Route: 065
  2. METHOTREXATE SODIUM [Suspect]
     Active Substance: METHOTREXATE SODIUM
     Indication: Type III immune complex mediated reaction
     Dosage: UNK
  3. TACROLIMUS [Concomitant]
     Active Substance: TACROLIMUS
     Indication: Type III immune complex mediated reaction
     Dosage: UNK
  4. TACROLIMUS [Concomitant]
     Active Substance: TACROLIMUS
     Indication: Product used for unknown indication
  5. LIDOCAINE [Suspect]
     Active Substance: LIDOCAINE
     Indication: Injection site pain
     Dosage: UNK
     Route: 061
  6. PREGABALIN [Suspect]
     Active Substance: PREGABALIN
     Indication: Injection site pain
     Dosage: UNK
     Route: 065
  7. COLCHICINE [Concomitant]
     Active Substance: COLCHICINE
     Indication: Type III immune complex mediated reaction
     Dosage: UNK
  8. COLCHICINE [Concomitant]
     Active Substance: COLCHICINE
     Indication: Product used for unknown indication
  9. DICLOFENAC [Suspect]
     Active Substance: DICLOFENAC
     Indication: Pain
     Dosage: UNK
     Route: 061
  10. EMLA [Suspect]
     Active Substance: LIDOCAINE\PRILOCAINE
     Indication: Injection site pain
     Route: 061
  11. KETAMINE [Suspect]
     Active Substance: KETAMINE
     Indication: Injection site pain
     Route: 061
  12. DULOXETINE [Suspect]
     Active Substance: DULOXETINE
     Indication: Injection site pain
     Dosage: UNK
     Route: 065
  13. VOLTAREN [Suspect]
     Active Substance: DICLOFENAC SODIUM
     Indication: Injection site pain
     Route: 065
  14. HYDROXYCHLOROQUINE [Concomitant]
     Active Substance: HYDROXYCHLOROQUINE
     Indication: Type III immune complex mediated reaction
  15. INSULIN HUMAN [Suspect]
     Active Substance: INSULIN HUMAN
     Indication: Type 1 diabetes mellitus
     Dosage: UNK
     Route: 033
  16. INSULIN NOS [Concomitant]
     Active Substance: INSULIN NOS
     Indication: Type 1 diabetes mellitus
     Dosage: UNK
     Route: 058
  17. INSULIN ASPART [Concomitant]
     Active Substance: INSULIN ASPART
     Indication: Type 1 diabetes mellitus
     Route: 058
  18. INSULIN DEGLUDEC [Concomitant]
     Active Substance: INSULIN DEGLUDEC
     Indication: Type 1 diabetes mellitus
     Dosage: UNK
     Route: 058
  19. INSULIN GLARGINE-AGLR [Concomitant]
     Active Substance: INSULIN GLARGINE-AGLR
     Indication: Type 1 diabetes mellitus
     Dosage: UNK
     Route: 058
  20. INSULIN GLULISINE RECOMBINANT [Concomitant]
     Active Substance: INSULIN GLULISINE
     Indication: Type 1 diabetes mellitus
     Dosage: UNK
     Route: 058
  21. INSULIN LISPRO [Concomitant]
     Active Substance: INSULIN LISPRO
     Indication: Type 1 diabetes mellitus
     Dosage: UNK
     Route: 058
  22. METHOTREXATE [Concomitant]
     Active Substance: METHOTREXATE
     Indication: Product used for unknown indication
     Route: 065

REACTIONS (7)
  - Off label use [Unknown]
  - Medical device site abscess [Unknown]
  - Medical device site cellulitis [Unknown]
  - Therapy partial responder [Unknown]
  - Condition aggravated [Unknown]
  - Therapy non-responder [Unknown]
  - Drug ineffective [Unknown]
